FAERS Safety Report 24653214 (Version 2)
Quarter: 2024Q4

REPORT INFORMATION
  Report Type: Spontaneous
  Country: US (occurrence: US)
  Receive Date: 20241122
  Receipt Date: 20241213
  Transmission Date: 20250115
  Serious: No
  Sender: BAYER HEALTHCARE PHARMACEUTICALS INC.
  Company Number: US-BAYER-2024A165210

PATIENT
  Age: 50 Year
  Sex: Female

DRUGS (1)
  1. CLIMARA PRO [Suspect]
     Active Substance: ESTRADIOL\LEVONORGESTREL
     Indication: Menopausal symptoms
     Route: 059

REACTIONS (3)
  - Menopausal symptoms [Not Recovered/Not Resolved]
  - Drug ineffective [None]
  - Device malfunction [None]
